FAERS Safety Report 19118290 (Version 2)
Quarter: 2021Q3

REPORT INFORMATION
  Report Type: Spontaneous
  Country: JP (occurrence: JP)
  Receive Date: 20210410
  Receipt Date: 20210802
  Transmission Date: 20211014
  Serious: Yes (Other)
  Sender: FDA-Public Use
  Company Number: JP-AMGEN-JPNSP2021052564

PATIENT
  Age: 69 Year
  Sex: Male
  Weight: 62.5 kg

DRUGS (5)
  1. KYPROLIS [Suspect]
     Active Substance: CARFILZOMIB
     Dosage: 90 MILLIGRAM, QWK
     Route: 041
     Dates: start: 20200110, end: 20200124
  2. KYPROLIS [Suspect]
     Active Substance: CARFILZOMIB
     Indication: PLASMA CELL MYELOMA
     Dosage: UNK
     Route: 041
     Dates: start: 20191011
  3. BAKTAR [Concomitant]
     Active Substance: SULFAMETHOXAZOLE\TRIMETHOPRIM
     Indication: PROPHYLAXIS
     Dosage: 1 DF, Q84H
     Route: 048
     Dates: start: 20200124, end: 20200207
  4. LENADEX [Concomitant]
     Active Substance: DEXAMETHASONE ACETATE
     Indication: PLASMA CELL MYELOMA
     Dosage: UNK
     Route: 048
     Dates: start: 20191011
  5. LENADEX [Concomitant]
     Active Substance: DEXAMETHASONE ACETATE
     Dosage: 20 MG, QW
     Route: 048
     Dates: start: 20200110

REACTIONS (3)
  - Renal disorder [Recovered/Resolved]
  - Cytomegalovirus infection [Recovered/Resolved]
  - Platelet count decreased [Recovered/Resolved]

NARRATIVE: CASE EVENT DATE: 20200207
